FAERS Safety Report 6639421-5 (Version None)
Quarter: 2010Q1

REPORT INFORMATION
  Report Type: 
  Country: None (occurrence: None)
  Receive Date: 20100318
  Receipt Date: 20100315
  Transmission Date: 20100710
  Serious: Yes (Other)
  Sender: FDA-Public Use
  Company Number: US-SP-2010-00343

PATIENT
  Sex: Female

DRUGS (4)
  1. TUBERSOL [Suspect]
     Indication: TUBERCULIN TEST
     Route: 023
     Dates: start: 20100112, end: 20100112
  2. HYDROCHLOROTHIAZIDE [Concomitant]
     Indication: POLYURIA
  3. INSULIN [Concomitant]
  4. NORVASC [Concomitant]

REACTIONS (3)
  - BRONCHOSPASM [None]
  - INJECTION SITE ERYTHEMA [None]
  - PRURITUS GENERALISED [None]
